FAERS Safety Report 10231527 (Version 1)
Quarter: 2014Q2

REPORT INFORMATION
  Report Type: Spontaneous
  Country: IN (occurrence: IN)
  Receive Date: 20140611
  Receipt Date: 20140611
  Transmission Date: 20141212
  Serious: Yes (Death, Hospitalization)
  Sender: FDA-Public Use
  Company Number: PHHY2014IN068254

PATIENT
  Age: 67 Year
  Sex: Female

DRUGS (1)
  1. NITROFURANTOIN [Suspect]
     Indication: URINARY TRACT INFECTION

REACTIONS (9)
  - Respiratory failure [Fatal]
  - Traumatic lung injury [Fatal]
  - Dyspnoea [Fatal]
  - Tachypnoea [Fatal]
  - Hypoxia [Fatal]
  - Rales [Fatal]
  - Alveolitis allergic [Fatal]
  - Cyanosis [Fatal]
  - Bronchiectasis [Fatal]
